FAERS Safety Report 25008330 (Version 2)
Quarter: 2025Q1

REPORT INFORMATION
  Report Type: Report from Study
  Country: US (occurrence: US)
  Receive Date: 20250225
  Receipt Date: 20250320
  Transmission Date: 20250409
  Serious: No
  Sender: DR REDDYS
  Company Number: US-DRL-USA-USA/2025/02/002178

PATIENT
  Age: 16 Year
  Sex: Male
  Weight: 67.4 kg

DRUGS (1)
  1. JAVYGTOR [Suspect]
     Active Substance: SAPROPTERIN DIHYDROCHLORIDE
     Indication: Hyperphenylalaninaemia
     Dosage: 700 MG (SEVEN 100 MG TABLETS) ONCE DAILY
     Route: 048

REACTIONS (2)
  - Gastrointestinal disorder [Unknown]
  - Therapy interrupted [Unknown]
